FAERS Safety Report 4707582-0 (Version None)
Quarter: 2005Q3

REPORT INFORMATION
  Report Type: 
  Country: None (occurrence: None)
  Receive Date: 20050706
  Receipt Date: 20050525
  Transmission Date: 20060218
  Serious: Yes (Other)
  Sender: FDA-Public Use
  Company Number: JP-NOVOPROD-244483

PATIENT
  Age: 6 Year
  Sex: Male
  Weight: 24 kg

DRUGS (2)
  1. NOVORAPID 30 MIX CHU PENFILL [Suspect]
     Indication: DIABETES MELLITUS INSULIN-DEPENDENT
     Dosage: 20 IU, QD
     Route: 058
     Dates: start: 20040515, end: 20050313
  2. HUMALOG [Concomitant]
     Indication: DIABETES MELLITUS INSULIN-DEPENDENT
     Dosage: 3-9 IU QD P.N.
     Route: 058
     Dates: start: 20040204

REACTIONS (4)
  - GASTROENTERITIS [None]
  - HYPOGLYCAEMIA [None]
  - PYREXIA [None]
  - VOMITING [None]
